FAERS Safety Report 24689080 (Version 1)
Quarter: 2024Q4

REPORT INFORMATION
  Report Type: Spontaneous
  Country: CA (occurrence: CA)
  Receive Date: 20241203
  Receipt Date: 20241203
  Transmission Date: 20250115
  Serious: Yes (Other)
  Sender: ROCHE
  Company Number: CA-ROCHE-10000141438

PATIENT
  Sex: Female

DRUGS (1)
  1. RITUXIMAB [Suspect]
     Active Substance: RITUXIMAB
     Indication: Neuromyelitis optica spectrum disorder
     Dosage: ON UNKNOWN DATE FREQUENCY WAS Q 2 WEEKS X 2 WEEKS X 2 DOSES, THEN FROM 02/10/2024 1000MG IV (2 HRS)
     Route: 042

REACTIONS (2)
  - Drug intolerance [Unknown]
  - Neuromyelitis optica spectrum disorder [Unknown]
